FAERS Safety Report 11539403 (Version 1)
Quarter: 2015Q3

REPORT INFORMATION
  Report Type: Spontaneous
  Country: US (occurrence: None)
  Receive Date: 20150922
  Receipt Date: 20150922
  Transmission Date: 20151125
  Serious: Yes (Other)
  Sender: FDA-Public Use
  Company Number: None

PATIENT

DRUGS (1)
  1. TERBINAFINE HYDROCHLORIDE. [Suspect]
     Active Substance: TERBINAFINE HYDROCHLORIDE
     Indication: TINEA PEDIS
     Dosage: 1 TIMES ON THE SKIN
     Dates: start: 20150908, end: 20150908

REACTIONS (4)
  - Nail disorder [None]
  - Skin fissures [None]
  - Burning sensation [None]
  - Pain [None]

NARRATIVE: CASE EVENT DATE: 20150908
